FAERS Safety Report 7633604-3 (Version None)
Quarter: 2011Q3

REPORT INFORMATION
  Report Type: 
  Country: None (occurrence: None)
  Receive Date: 20110725
  Receipt Date: 20110720
  Transmission Date: 20111222
  Serious: Yes (Other)
  Sender: FDA-Public Use
  Company Number: US-GLAXOSMITHKLINE-A0937491A

PATIENT
  Age: 58 Year
  Sex: Male

DRUGS (2)
  1. HORIZANT [Suspect]
     Indication: RESTLESS LEGS SYNDROME
     Dosage: 1TAB PER DAY
     Route: 048
     Dates: start: 20110714, end: 20110715
  2. NO CONCURRENT MEDICATION [Concomitant]

REACTIONS (8)
  - FACE INJURY [None]
  - INSOMNIA [None]
  - HALLUCINATION [None]
  - SOMNAMBULISM [None]
  - EPISTAXIS [None]
  - JOINT INJURY [None]
  - FALL [None]
  - LIMB INJURY [None]
